FAERS Safety Report 13195601 (Version 2)
Quarter: 2017Q4

REPORT INFORMATION
  Report Type: Spontaneous
  Country: US (occurrence: US)
  Receive Date: 20170208
  Receipt Date: 20171218
  Transmission Date: 20180320
  Serious: Yes (Other)
  Sender: FDA-Public Use
  Company Number: US-BAUSCH-BL-2017-003260

PATIENT
  Age: 66 Year
  Sex: Male

DRUGS (5)
  1. WARFARIN [Suspect]
     Active Substance: WARFARIN
     Indication: ANTICOAGULANT THERAPY
     Dosage: DOSE RANGING FROM 42.5-45 MG
     Route: 065
     Dates: start: 2015
  2. WARFARIN [Suspect]
     Active Substance: WARFARIN
     Dosage: DOSE INCREASED BY 5 PERCENT
     Route: 065
     Dates: start: 2015
  3. RIBAVIRIN. [Suspect]
     Active Substance: RIBAVIRIN
     Indication: CHRONIC HEPATITIS C
     Route: 065
     Dates: start: 2015
  4. LEDIPASVIR W/SOFOSBUVIR [Suspect]
     Active Substance: LEDIPASVIR\SOFOSBUVIR
     Indication: CHRONIC HEPATITIS C
     Route: 065
     Dates: start: 2015
  5. ENOXAPARIN [Concomitant]
     Active Substance: ENOXAPARIN
     Indication: ANTICOAGULANT THERAPY
     Route: 058
     Dates: start: 2015

REACTIONS (2)
  - Drug interaction [Unknown]
  - Anticoagulation drug level below therapeutic [Unknown]

NARRATIVE: CASE EVENT DATE: 2015
